FAERS Safety Report 5874549-9 (Version None)
Quarter: 2008Q3

REPORT INFORMATION
  Report Type: 
  Country: None (occurrence: None)
  Receive Date: 20080909
  Receipt Date: 20080902
  Transmission Date: 20090109
  Serious: Yes (Hospitalization, Other)
  Sender: FDA-Public Use
  Company Number: PHHY2008JP19696

PATIENT
  Age: 68 Year
  Sex: Female

DRUGS (10)
  1. TEGRETOL [Suspect]
     Indication: TRIGEMINAL NEURALGIA
     Dosage: 4 DF, 400MG DAILY
     Route: 048
     Dates: start: 20080715, end: 20080716
  2. HYPEN [Concomitant]
  3. ALLELOCK [Concomitant]
  4. ALFAROL [Concomitant]
  5. LASIX [Concomitant]
  6. LAC B [Concomitant]
  7. URSO 250 [Concomitant]
  8. RABEPRAZOLE SODIUM [Concomitant]
  9. LIPITOR [Concomitant]
  10. DEPAS [Concomitant]

REACTIONS (6)
  - DRUG RASH WITH EOSINOPHILIA AND SYSTEMIC SYMPTOMS [None]
  - GENERALISED ERYTHEMA [None]
  - HEPATIC FUNCTION ABNORMAL [None]
  - MALAISE [None]
  - PYREXIA [None]
  - RASH [None]
